FAERS Safety Report 14996009 (Version 1)
Quarter: 2018Q2

REPORT INFORMATION
  Report Type: Spontaneous
  Country: US (occurrence: US)
  Receive Date: 20180522
  Receipt Date: 20180522
  Transmission Date: 20180711
  Serious: Yes (Life-Threatening, Hospitalization)
  Sender: FDA-Public Use
  Company Number: None

PATIENT
  Age: 94 Year
  Sex: Male
  Weight: 70.3 kg

DRUGS (4)
  1. SERTRALINE 50 MG DAILY [Concomitant]
     Dates: start: 20170101
  2. TRAZODONE 25 MG QHS [Concomitant]
     Dates: start: 20180208
  3. GLIMEPIRIDE 2 MG BID [Concomitant]
     Dates: start: 20170101
  4. MIRABEGRON ORAL TABLET EXTENDED RELEASE [Suspect]
     Active Substance: MIRABEGRON
     Indication: NOCTURIA
     Route: 048
     Dates: start: 20180414, end: 20180518

REACTIONS (1)
  - Angioedema [None]

NARRATIVE: CASE EVENT DATE: 20180519
